FAERS Safety Report 6955589-5 (Version None)
Quarter: 2010Q3

REPORT INFORMATION
  Report Type: 
  Country: None (occurrence: None)
  Receive Date: 20100830
  Receipt Date: 20100823
  Transmission Date: 20110219
  Serious: Yes (Hospitalization)
  Sender: FDA-Public Use
  Company Number: DE-ROCHE-656746

PATIENT
  Sex: Female
  Weight: 77 kg

DRUGS (9)
  1. BEVACIZUMAB [Suspect]
     Indication: BREAST CANCER
     Dosage: LAST DOSE PRIOR TO SAE WAS 24 AUGUST 2009. FORM : INFUSION. DOSE AS PER PROTOCOL.
     Route: 042
     Dates: start: 20090803
  2. BEVACIZUMAB [Suspect]
     Route: 042
     Dates: start: 20090921, end: 20100308
  3. BEVACIZUMAB [Suspect]
     Dosage: LAST DOSE PRIOR TO SAE: 10 MAY 2010
     Route: 042
  4. CAPECITABINE [Suspect]
     Indication: BREAST CANCER
     Dosage: DATE OF LAST DOSE 06 SEPTEMBER 2009, TEMPORARILY INTERRUPTED. DOSE AS PER PROTOCOL. DAY 1-14.
     Route: 048
     Dates: start: 20090803
  5. CAPECITABINE [Suspect]
     Dosage: DAY 1-14 (AS PER PROTOCOL). TEMPORARILY INTERRUPTED.
     Route: 048
     Dates: start: 20090921, end: 20100318
  6. CAPECITABINE [Suspect]
     Dosage: FREQUENCY EVENING AFTER IMPLANTATION OF START IN MORNING. LAST DOSE PRIOR TO SAE: 23 MAY 2010
     Route: 048
     Dates: start: 20100319
  7. DEXAMETHASONE [Concomitant]
     Dates: start: 20090803, end: 20090824
  8. NOVALGIN [Concomitant]
     Dosage: DAILY DOSE: AS NEEDED
     Dates: start: 20091102
  9. RAMIPRIL [Concomitant]
     Dates: start: 20100308

REACTIONS (2)
  - URETERIC STENOSIS [None]
  - URINARY TRACT INFECTION [None]
